FAERS Safety Report 7551414-2 (Version None)
Quarter: 2011Q2

REPORT INFORMATION
  Report Type: 
  Country: None (occurrence: None)
  Receive Date: 20110609
  Receipt Date: 20110524
  Transmission Date: 20111010
  Serious: Yes (Hospitalization, Other)
  Sender: FDA-Public Use
  Company Number: 2011MA006372

PATIENT
  Age: 59 Year
  Sex: Male

DRUGS (5)
  1. MYCOPHENOLATE MOFETIL [Concomitant]
  2. TICLOPIDINE HYDROCHLORIDE [Suspect]
     Indication: DRUG THERAPY
  3. CYCLOSPORINE [Concomitant]
  4. CORTICOSTEROIDS [Concomitant]
  5. MESALAZINE [Concomitant]

REACTIONS (17)
  - ANISOCYTOSIS [None]
  - PROTHROMBIN LEVEL DECREASED [None]
  - INTESTINAL ISCHAEMIA [None]
  - ASTHENIA [None]
  - EPSTEIN-BARR VIRUS TEST POSITIVE [None]
  - THROMBOTIC MICROANGIOPATHY [None]
  - COLITIS ULCERATIVE [None]
  - BLOOD LACTATE DEHYDROGENASE INCREASED [None]
  - GASTROINTESTINAL EROSION [None]
  - ATRIAL FIBRILLATION [None]
  - ABDOMINAL PAIN [None]
  - ANAEMIA [None]
  - BLOOD IRON DECREASED [None]
  - PYREXIA [None]
  - GASTROINTESTINAL NECROSIS [None]
  - INTESTINAL HAEMORRHAGE [None]
  - DIARRHOEA HAEMORRHAGIC [None]
